FAERS Safety Report 21720760 (Version 1)
Quarter: 2022Q4

REPORT INFORMATION
  Report Type: Spontaneous
  Country: US (occurrence: None)
  Receive Date: 20221212
  Receipt Date: 20221212
  Transmission Date: 20230113
  Serious: Yes (Death)
  Sender: FDA-Public Use
  Company Number: None

PATIENT
  Sex: Male

DRUGS (24)
  1. TACROLIMUS [Suspect]
     Active Substance: TACROLIMUS
     Indication: Acute myeloid leukaemia
     Dosage: 0.5 MG ORAL?TAKE 3 CAPSULES (1.5MG) BY MOUTH EVERY 12 HOURS OR AS DIRECTED BY STEM CELL TRANSPLANT T
     Route: 048
     Dates: start: 20220112
  2. TACROLIMUS [Suspect]
     Active Substance: TACROLIMUS
     Dosage: FREQUENCY : EVERY 12 HOURS;?
     Route: 048
  3. ACYCLOVIR [Concomitant]
     Active Substance: ACYCLOVIR
  4. AMLODIPINE [Concomitant]
     Active Substance: AMLODIPINE BESYLATE
  5. BUPRENORPHIN DIS [Concomitant]
  6. DAPSONE [Concomitant]
     Active Substance: DAPSONE
  7. DULOXETINE [Concomitant]
     Active Substance: DULOXETINE
  8. FLUCONAZOLE [Concomitant]
     Active Substance: FLUCONAZOLE
  9. LISINOPRIL [Concomitant]
     Active Substance: LISINOPRIL
  10. LORAZEPAM [Concomitant]
     Active Substance: LORAZEPAM
  11. METOPROL SUC [Concomitant]
  12. MYCOPHENOLIC ACID [Concomitant]
     Active Substance: MYCOPHENOLIC ACID
  13. NIVESTYM [Concomitant]
     Active Substance: FILGRASTIM-AAFI
  14. NORVASC [Concomitant]
     Active Substance: AMLODIPINE BESYLATE
  15. NOVOLOG [Concomitant]
  16. ONDANSETRON [Concomitant]
     Active Substance: ONDANSETRON
  17. OXYBUTYNIN [Concomitant]
  18. PREDNISONE [Concomitant]
     Active Substance: PREDNISONE
  19. PREGABALIN [Concomitant]
     Active Substance: PREGABALIN
  20. PREVYMIS [Concomitant]
     Active Substance: LETERMOVIR
  21. PROCHLORPER [Concomitant]
  22. SIROLIMUS [Concomitant]
     Active Substance: SIROLIMUS
  23. TRIAMCINOLON CRE [Concomitant]
  24. URSODIOL [Concomitant]
     Active Substance: URSODIOL

REACTIONS (1)
  - Death [None]
